FAERS Safety Report 5907247-3 (Version None)
Quarter: 2008Q4

REPORT INFORMATION
  Report Type: 
  Country: None (occurrence: None)
  Receive Date: 20081003
  Receipt Date: 20080925
  Transmission Date: 20090506
  Serious: Yes (Other)
  Sender: FDA-Public Use
  Company Number: PHEH2008US08664

PATIENT
  Sex: Female

DRUGS (2)
  1. EXELON [Suspect]
     Route: 062
  2. EXELON [Suspect]

REACTIONS (3)
  - RASH [None]
  - SKIN IRRITATION [None]
  - STEVENS-JOHNSON SYNDROME [None]
